FAERS Safety Report 6204467-8 (Version None)
Quarter: 2009Q2

REPORT INFORMATION
  Report Type: 
  Country: None (occurrence: None)
  Receive Date: 20090527
  Receipt Date: 20090526
  Transmission Date: 20091009
  Serious: Yes (Other)
  Sender: FDA-Public Use
  Company Number: AU-ROXANE LABORATORIES, INC.-2009-RO-00518RO

PATIENT
  Age: 36 Year
  Sex: Female

DRUGS (4)
  1. CYCLOPHOSPHAMIDE [Suspect]
     Indication: BREAST CANCER
  2. DOCETAXEL [Suspect]
     Indication: BREAST CANCER
  3. ADRIAMYCIN RDF [Suspect]
     Indication: BREAST CANCER
  4. GRANULOCYTE MACROPHAGE COLONY STIMULATING FACTOR [Suspect]
     Indication: BONE MARROW FAILURE

REACTIONS (1)
  - EXTRAMEDULLARY HAEMOPOIESIS [None]
